FAERS Safety Report 7644425-X (Version None)
Quarter: 2011Q3

REPORT INFORMATION
  Report Type: 
  Country: None (occurrence: None)
  Receive Date: 20110729
  Receipt Date: 20110725
  Transmission Date: 20111222
  Serious: Yes (Hospitalization)
  Sender: FDA-Public Use
  Company Number: JP-ROCHE-575920

PATIENT
  Sex: Female
  Weight: 37 kg

DRUGS (14)
  1. METHOTREXATE [Suspect]
     Indication: RHEUMATOID ARTHRITIS
     Route: 048
     Dates: end: 20080710
  2. METHOTREXATE [Suspect]
     Route: 048
     Dates: start: 20080805, end: 20080811
  3. LANSOPRAZOLE [Concomitant]
     Dosage: FORM ORAL FORMULATION (NOT OTHERWISE SPECIFIED)
     Route: 048
  4. LOXONIN [Concomitant]
     Route: 048
  5. PROGRAF [Concomitant]
     Dosage: FORM: ORAL FORMULATION (NOT OTHERWISE SPECIFIED)
     Route: 048
     Dates: end: 20080710
  6. ISONIAZID [Concomitant]
     Route: 048
  7. TOCILIZUMAB [Suspect]
     Route: 041
     Dates: start: 20080922, end: 20080922
  8. TOCILIZUMAB [Suspect]
     Route: 041
     Dates: start: 20080729, end: 20080729
  9. TOCILIZUMAB [Suspect]
     Dosage: TREATMENT READMINISTARTED.
     Route: 041
  10. PREDNISOLONE [Suspect]
     Indication: RHEUMATOID ARTHRITIS
     Route: 048
     Dates: end: 20080710
  11. TOCILIZUMAB [Suspect]
     Indication: RHEUMATOID ARTHRITIS
     Route: 041
     Dates: start: 20080624, end: 20080624
  12. TOCILIZUMAB [Suspect]
     Route: 041
     Dates: start: 20080826, end: 20080826
  13. METHOTREXATE [Suspect]
     Route: 048
     Dates: start: 20080812
  14. HALCION [Concomitant]
     Route: 048
     Dates: start: 20080807

REACTIONS (4)
  - PLEURAL EFFUSION [None]
  - CARDIAC TAMPONADE [None]
  - HERPES ZOSTER [None]
  - PERICARDITIS RHEUMATIC [None]
